FAERS Safety Report 9938065 (Version 1)
Quarter: 2014Q1

REPORT INFORMATION
  Report Type: Spontaneous
  Country: US (occurrence: US)
  Receive Date: 20140303
  Receipt Date: 20140303
  Transmission Date: 20141002
  Serious: Yes (Hospitalization)
  Sender: FDA-Public Use
  Company Number: US-BAYER-2014-029904

PATIENT
  Age: 18 Year
  Sex: Female
  Weight: 49.43 kg

DRUGS (6)
  1. BEYAZ [Suspect]
  2. SKELAXIN [Concomitant]
     Indication: BACK PAIN
     Dosage: 800 MG, UNK
     Dates: start: 20120127
  3. ANAPROX DS [Concomitant]
     Indication: BACK PAIN
     Dosage: 550 MG, UNK
     Dates: start: 20120127
  4. NAPROSYN [Concomitant]
  5. FLUCONAZOLE [Concomitant]
     Dosage: 150 MG, UNK
  6. CLARITIN [Concomitant]

REACTIONS (4)
  - Pulmonary embolism [None]
  - Pelvic venous thrombosis [Recovered/Resolved]
  - Deep vein thrombosis [Recovered/Resolved]
  - Vena cava thrombosis [Recovered/Resolved]
